FAERS Safety Report 4877379-X (Version None)
Quarter: 2006Q1

REPORT INFORMATION
  Report Type: 
  Country: None (occurrence: None)
  Receive Date: 20060111
  Receipt Date: 20051115
  Transmission Date: 20060701
  Serious: Yes (Hospitalization)
  Sender: FDA-Public Use
  Company Number: US-BOEHRINGER INGELHEIM PHARMACEUTICALS, INC.-2005-BP-20281BP

PATIENT
  Age: 78 Year
  Sex: Female

DRUGS (2)
  1. MOBIC [Suspect]
     Indication: PAIN
     Route: 048
  2. CATAPRES [Suspect]
     Indication: HYPERTENSION
     Route: 061
     Dates: end: 20051017

REACTIONS (4)
  - BLINDNESS [None]
  - BLINDNESS UNILATERAL [None]
  - BLOOD PRESSURE INCREASED [None]
  - CEREBROVASCULAR ACCIDENT [None]
